FAERS Safety Report 5534432-5 (Version None)
Quarter: 2007Q4

REPORT INFORMATION
  Report Type: 
  Country: None (occurrence: None)
  Receive Date: 20071205
  Receipt Date: 20071128
  Transmission Date: 20080405
  Serious: Yes (Hospitalization, Congenital Anomaly)
  Sender: FDA-Public Use
  Company Number: A0683117A

PATIENT
  Sex: Male
  Weight: 4.3 kg

DRUGS (5)
  1. PAXIL [Suspect]
     Indication: DEPRESSION
     Dates: start: 20010515, end: 20020101
  2. PAXIL CR [Suspect]
     Indication: POSTPARTUM DEPRESSION
     Dosage: 40MG PER DAY
     Dates: start: 20020101, end: 20030101
  3. BIRTH CONTROL [Concomitant]
  4. PRENATAL VITAMINS [Concomitant]
  5. ROLAIDS [Concomitant]

REACTIONS (27)
  - ABDOMINAL PAIN [None]
  - ATELECTASIS [None]
  - CARBOXYHAEMOGLOBIN INCREASED [None]
  - CARDIAC MURMUR [None]
  - CEPHALO-PELVIC DISPROPORTION [None]
  - CONGENITAL DIAPHRAGMATIC HERNIA [None]
  - CRYPTORCHISM [None]
  - DILATATION ATRIAL [None]
  - DRUG EXPOSURE DURING PREGNANCY [None]
  - FEEDING DISORDER NEONATAL [None]
  - FOOD AVERSION [None]
  - GENERALISED OEDEMA [None]
  - HEART VALVE INCOMPETENCE [None]
  - INGUINAL HERNIA [None]
  - MITRAL VALVE INCOMPETENCE [None]
  - MULTIPLE CONGENITAL ABNORMALITIES [None]
  - PATENT DUCTUS ARTERIOSUS [None]
  - PERSISTENT FOETAL CIRCULATION [None]
  - PHIMOSIS [None]
  - PLEURAL EFFUSION [None]
  - PNEUMONIA [None]
  - PNEUMOTHORAX [None]
  - PULMONARY HYPOPLASIA [None]
  - PULMONARY MALFORMATION [None]
  - RESPIRATORY FAILURE [None]
  - TRICUSPID VALVE INCOMPETENCE [None]
  - VOMITING [None]
